FAERS Safety Report 15469068 (Version 2)
Quarter: 2018Q4

REPORT INFORMATION
  Report Type: Spontaneous
  Country: JP (occurrence: JP)
  Receive Date: 20181005
  Receipt Date: 20181010
  Transmission Date: 20190205
  Serious: Yes (Other)
  Sender: FDA-Public Use
  Company Number: JP-JNJFOC-20151124008

PATIENT
  Age: 38 Year
  Sex: Female
  Weight: 56.7 kg

DRUGS (5)
  1. ETRETINATE [Concomitant]
     Active Substance: ETRETINATE
     Indication: PUSTULAR PSORIASIS
     Route: 048
  2. ETRETINATE [Concomitant]
     Active Substance: ETRETINATE
     Indication: PSORIATIC ARTHROPATHY
     Route: 048
  3. BETAMETHASONE. [Concomitant]
     Active Substance: BETAMETHASONE
     Indication: PUSTULAR PSORIASIS
     Route: 048
  4. BETAMETHASONE. [Concomitant]
     Active Substance: BETAMETHASONE
     Indication: PSORIATIC ARTHROPATHY
     Route: 048
  5. REMICADE [Suspect]
     Active Substance: INFLIXIMAB
     Indication: PUSTULAR PSORIASIS
     Dosage: 5 YEARS AGO
     Route: 042

REACTIONS (1)
  - Anaphylactic shock [Unknown]
